FAERS Safety Report 23771531 (Version 2)
Quarter: 2024Q2

REPORT INFORMATION
  Report Type: Spontaneous
  Country: US (occurrence: US)
  Receive Date: 20240423
  Receipt Date: 20240425
  Transmission Date: 20240716
  Serious: No
  Sender: FDA-Public Use
  Company Number: US-SANDOZ-SDZ2024US041559

PATIENT
  Age: 52 Year
  Sex: Female

DRUGS (2)
  1. COMBIPATCH [Suspect]
     Active Substance: ESTRADIOL\NORETHINDRONE ACETATE
     Indication: Menopausal symptoms
     Dosage: 0.05/0.14 MG
     Route: 062
     Dates: start: 202311
  2. COMBIPATCH [Suspect]
     Active Substance: ESTRADIOL\NORETHINDRONE ACETATE
     Dosage: 0.05/0.14 MG
     Route: 065
     Dates: start: 202404

REACTIONS (5)
  - Abdominal distension [Not Recovered/Not Resolved]
  - Product administration error [Unknown]
  - Product quality issue [Unknown]
  - Product adhesion issue [Unknown]
  - Therapeutic product ineffective [Unknown]

NARRATIVE: CASE EVENT DATE: 20240401
